FAERS Safety Report 8620710 (Version 2)
Quarter: 2013Q1

REPORT INFORMATION
  Report Type: Spontaneous
  Country: US (occurrence: US)
  Receive Date: 20120618
  Receipt Date: 20130220
  Transmission Date: 20140127
  Serious: Yes (Other)
  Sender: FDA-Public Use
  Company Number: CHPA2012US011872

PATIENT
  Sex: Female

DRUGS (3)
  1. EXCEDRIN EXTRA STRENGTH [Suspect]
     Indication: HEADACHE
     Dosage: 2 DF, QD
     Route: 048
     Dates: start: 1981, end: 201209
  2. EXCEDRIN EXTRA STRENGTH [Suspect]
     Indication: HEADACHE
     Dosage: 2 DF, QD
     Route: 048
     Dates: end: 201209
  3. IMITREX ^CERENEX^ [Concomitant]
     Indication: HEADACHE

REACTIONS (6)
  - Basedow^s disease [Recovered/Resolved]
  - Anaemia [Not Recovered/Not Resolved]
  - Blood test abnormal [Not Recovered/Not Resolved]
  - Energy increased [Unknown]
  - Therapeutic response unexpected [Unknown]
  - Incorrect drug administration duration [Unknown]
